FAERS Safety Report 8971538 (Version 2)
Quarter: 2013Q3

REPORT INFORMATION
  Report Type: Report from Study
  Country: MX (occurrence: MX)
  Receive Date: 20121218
  Receipt Date: 20130802
  Transmission Date: 20140515
  Serious: Yes (Hospitalization, Other)
  Sender: FDA-Public Use
  Company Number: PHHY2012MX115893

PATIENT
  Age: 51 Year
  Sex: Female

DRUGS (2)
  1. CO-DIOVAN [Suspect]
     Indication: HYPERTENSION
     Dosage: 1 DF (VALS 80 MG, HCTZ 12.5MG) DAILY
     Route: 048
     Dates: start: 20121127, end: 20121208
  2. CO-DIOVAN [Suspect]
     Dosage: 1 DF (VALS 80 MG, HCTZ 12.5MG) DAILY
     Route: 048
     Dates: start: 201301

REACTIONS (4)
  - Carotid artery aneurysm [Recovered/Resolved]
  - Thrombosis [Recovered/Resolved]
  - Infarction [Recovered/Resolved]
  - Mobility decreased [Recovered/Resolved]
